FAERS Safety Report 6445740-8 (Version None)
Quarter: 2009Q4

REPORT INFORMATION
  Report Type: 
  Country: None (occurrence: None)
  Receive Date: 20091116
  Receipt Date: 20091103
  Transmission Date: 20100525
  Serious: Yes (Death, Life-Threatening, Hospitalization, Disabling, Other)
  Sender: FDA-Public Use
  Company Number: 2008-04331

PATIENT
  Age: 73 Year
  Sex: Male

DRUGS (13)
  1. VELCADE [Suspect]
     Indication: MULTIPLE MYELOMA
     Dosage: 1.3 MG/M2, IV BOLUS; 1 MG/M2, IV BOLUS
     Route: 040
     Dates: start: 20081027, end: 20081030
  2. VELCADE [Suspect]
     Indication: MULTIPLE MYELOMA
     Dosage: 1.3 MG/M2, IV BOLUS; 1 MG/M2, IV BOLUS
     Route: 040
     Dates: start: 20081006
  3. TANESPIMYCIN (TANESPIMYCIN) [Suspect]
     Indication: MULTIPLE MYELOMA
     Dosage: 340 MG/M2, IV BOLUS; 275 MG/M2, IV BOLUS
     Route: 040
     Dates: start: 20081030, end: 20081030
  4. TANESPIMYCIN (TANESPIMYCIN) [Suspect]
     Indication: MULTIPLE MYELOMA
     Dosage: 340 MG/M2, IV BOLUS; 275 MG/M2, IV BOLUS
     Route: 040
     Dates: start: 20081006
  5. ACYCLOVIR [Concomitant]
  6. LISINOPRIL [Concomitant]
  7. PRILOSEC [Concomitant]
  8. BACTRIM [Concomitant]
  9. ASPIRIN [Concomitant]
  10. FOLIC ACID [Concomitant]
  11. IMODIUM [Concomitant]
  12. PREDNISONE [Concomitant]
  13. ONDANSETRON HYDROCHLORIDE [Concomitant]

REACTIONS (12)
  - BACTERIAL SEPSIS [None]
  - BRADYCARDIA [None]
  - CARDIAC ARREST [None]
  - CARDIAC FAILURE [None]
  - CORONARY ARTERY DISEASE [None]
  - DIARRHOEA [None]
  - DIVERTICULITIS [None]
  - DYSPEPSIA [None]
  - HYPOTENSION [None]
  - LEFT VENTRICULAR HYPERTROPHY [None]
  - MYOCARDIAL INFARCTION [None]
  - MYOCARDIAL ISCHAEMIA [None]
